FAERS Safety Report 25653008 (Version 2)
Quarter: 2025Q3

REPORT INFORMATION
  Report Type: Report from Study
  Country: US (occurrence: US)
  Receive Date: 20250807
  Receipt Date: 20250815
  Transmission Date: 20251021
  Serious: No
  Sender: SUNOVION
  Company Number: US-SUMITOMO PHARMA SWITZERLAND GMBH-2024SPA003089

PATIENT
  Age: 87 Year
  Sex: Male

DRUGS (9)
  1. ORGOVYX [Suspect]
     Active Substance: RELUGOLIX
     Indication: Prostate cancer
     Dosage: 120 MG, QD
     Route: 048
     Dates: start: 20240704
  2. TAMSULOSIN [Concomitant]
     Active Substance: TAMSULOSIN
  3. ATORVASTATIN [Concomitant]
     Active Substance: ATORVASTATIN
  4. DONEPEZIL [Concomitant]
     Active Substance: DONEPEZIL
  5. HYDROCHLOROTHIAZIDE [Concomitant]
     Active Substance: HYDROCHLOROTHIAZIDE
  6. LISINOPRIL [Concomitant]
     Active Substance: LISINOPRIL
  7. MEMANTINE [Concomitant]
     Active Substance: MEMANTINE
  8. METFORMIN [Concomitant]
     Active Substance: METFORMIN HYDROCHLORIDE
  9. VITAMINS [Concomitant]
     Active Substance: VITAMINS

REACTIONS (8)
  - Memory impairment [Unknown]
  - Pruritus [Unknown]
  - Dysuria [Unknown]
  - Hot flush [Unknown]
  - Depressed mood [Unknown]
  - Feeling hot [Unknown]
  - Product dose omission issue [Recovered/Resolved]
  - Incorrect dose administered [Recovered/Resolved]
